FAERS Safety Report 7741824 (Version 2)
Quarter: 2012Q4

REPORT INFORMATION
  Report Type: 
  Country: US (occurrence: US)
  Receive Date: 20101228
  Receipt Date: 20121003
  Transmission Date: 20130627
  Serious: Yes (Other)
  Sender: FDA-Public Use
  Company Number: US-MERCK-1012USA03127

PATIENT
  Sex: Male

DRUGS (2)
  1. JANUVIA [Suspect]
     Route: 048
  2. AMARYL [Suspect]

REACTIONS (3)
  - Cardiac operation [Unknown]
  - Drug ineffective [Unknown]
  - Blood glucose increased [Unknown]
